FAERS Safety Report 12845652 (Version 3)
Quarter: 2017Q3

REPORT INFORMATION
  Report Type: Report from Study
  Country: None (occurrence: BR)
  Receive Date: 20161013
  Receipt Date: 20170714
  Transmission Date: 20171127
  Serious: Yes (Hospitalization, Other)
  Sender: FDA-Public Use
  Company Number: BR-ABBVIE-16P-020-1752969-00

PATIENT
  Age: 67 Year
  Sex: Female
  Weight: 56 kg

DRUGS (2)
  1. SYNTHROID [Suspect]
     Active Substance: LEVOTHYROXINE SODIUM
     Indication: HYPOTHYROIDISM
     Route: 048
     Dates: start: 2006
  2. ESC [Suspect]
     Active Substance: ESCITALOPRAM OXALATE
     Indication: GENERALISED ANXIETY DISORDER
     Dosage: DAILY DOSE: 20 MG;AT NIGHT
     Route: 065

REACTIONS (15)
  - Depression [Recovered/Resolved]
  - Generalised anxiety disorder [Recovered/Resolved]
  - Fatigue [Not Recovered/Not Resolved]
  - Weight decreased [Recovered/Resolved]
  - Pain in extremity [Recovered/Resolved]
  - Blood potassium decreased [Recovering/Resolving]
  - Arrhythmia [Recovered/Resolved]
  - Swelling [Not Recovered/Not Resolved]
  - Anaemia [Recovering/Resolving]
  - Gastric cancer [Recovered/Resolved]
  - Thirst [Not Recovered/Not Resolved]
  - Gastrointestinal carcinoma [Recovered/Resolved]
  - Iron deficiency [Unknown]
  - Diarrhoea [Not Recovered/Not Resolved]
  - Arrhythmia [Recovered/Resolved]

NARRATIVE: CASE EVENT DATE: 2007
